FAERS Safety Report 25244426 (Version 1)
Quarter: 2025Q2

REPORT INFORMATION
  Report Type: Spontaneous
  Country: BR (occurrence: BR)
  Receive Date: 20250428
  Receipt Date: 20250428
  Transmission Date: 20250717
  Serious: No
  Sender: ALKEM
  Company Number: BR-ALKEM LABORATORIES LIMITED-BR-ALKEM-2025-01181

PATIENT
  Age: 37 Year
  Sex: Female

DRUGS (4)
  1. SIROLIMUS [Suspect]
     Active Substance: SIROLIMUS
     Indication: Rhabdomyoma
     Dosage: 8 MILLIGRAM, QD (WEEK OF TREATMENT 3, 4, 5, 6, 7)
     Route: 048
  2. SIROLIMUS [Suspect]
     Active Substance: SIROLIMUS
     Indication: Congenital heart valve disorder
     Dosage: 6 MILLIGRAM, QD (WEEK OF TREATMENT 2)
     Route: 048
  3. SIROLIMUS [Suspect]
     Active Substance: SIROLIMUS
     Dosage: 4 MILLIGRAM, QD (WEEK OF TREATMENT 1, 8)
     Route: 048
  4. SIROLIMUS [Suspect]
     Active Substance: SIROLIMUS
     Route: 048

REACTIONS (2)
  - Hypertriglyceridaemia [Recovering/Resolving]
  - Exposure during pregnancy [Unknown]
